FAERS Safety Report 11661195 (Version 1)
Quarter: 2015Q4

REPORT INFORMATION
  Report Type: Spontaneous
  Country: US (occurrence: US)
  Receive Date: 20151026
  Receipt Date: 20151026
  Transmission Date: 20160304
  Serious: No
  Sender: FDA-Public Use
  Company Number: US-BRISTOL-MYERS SQUIBB COMPANY-BMS-2015-072085

PATIENT
  Sex: Female

DRUGS (2)
  1. YERVOY [Suspect]
     Active Substance: IPILIMUMAB
     Indication: ANAL CANCER
     Dosage: UNK
     Route: 065
     Dates: start: 20150901
  2. OPDIVO [Suspect]
     Active Substance: NIVOLUMAB
     Indication: ANAL CANCER
     Route: 065
     Dates: start: 20150901

REACTIONS (5)
  - Muscular weakness [Unknown]
  - Hyperthyroidism [Unknown]
  - Neuropathy peripheral [Unknown]
  - Fatigue [Unknown]
  - Off label use [Unknown]
